FAERS Safety Report 8075483-9 (Version None)
Quarter: 2012Q1

REPORT INFORMATION
  Report Type: 
  Country: None (occurrence: None)
  Receive Date: 20120127
  Receipt Date: 20120124
  Transmission Date: 20120608
  Serious: Yes (Other)
  Sender: FDA-Public Use
  Company Number: US-PFIZER INC-2012020091

PATIENT
  Sex: Female
  Weight: 68.481 kg

DRUGS (6)
  1. XANAX [Concomitant]
     Dosage: 1 MG, AS NEEDED
  2. TRAMADOL [Concomitant]
     Indication: NERVOUS SYSTEM DISORDER
     Dosage: 50 MG, 2X/DAY
     Route: 048
  3. HYDROCODONE [Concomitant]
     Indication: NERVOUS SYSTEM DISORDER
     Dosage: UNK, AS NEEDED
  4. LYRICA [Suspect]
     Indication: FIBROMYALGIA
     Dosage: 75MG IN MORNING, 75MG IN THE AFTERNOON, AND TWO 75MG CAPSULES AT NIGHT
     Route: 048
  5. CLONAZEPAM [Concomitant]
     Dosage: 1 MG, 3X/DAY
  6. FOLIC ACID [Concomitant]
     Dosage: UNK, 1XDAY

REACTIONS (2)
  - WEIGHT INCREASED [None]
  - BACK INJURY [None]
